FAERS Safety Report 4736196-1 (Version None)
Quarter: 2005Q3

REPORT INFORMATION
  Report Type: 
  Country: None (occurrence: None)
  Receive Date: 20050806
  Receipt Date: 20050729
  Transmission Date: 20060218
  Serious: Yes (Hospitalization)
  Sender: FDA-Public Use
  Company Number: PHRM2005FR02205

PATIENT
  Age: 75 Year
  Sex: Male

DRUGS (5)
  1. TAREG [Suspect]
     Indication: HYPERTENSION
     Route: 048
  2. FRACTAL [Suspect]
     Dosage: 2 CAPS/DAY
     Route: 048
  3. TENORDATE [Suspect]
     Indication: HYPERTENSION
     Dosage: 2 TABS/DAY
     Route: 048
  4. CORVASAL [Suspect]
     Dosage: 2 TABS/DAY
     Route: 048
  5. LOPERAMIDE HYDROCHLORIDE [Suspect]
     Indication: DIARRHOEA
     Route: 048
     Dates: start: 20050531, end: 20050610

REACTIONS (16)
  - BLOOD ALKALINE PHOSPHATASE INCREASED [None]
  - BLOOD CREATININE INCREASED [None]
  - COXSACKIE VIRAL INFECTION [None]
  - CYTOLYTIC HEPATITIS [None]
  - DIARRHOEA [None]
  - DRUG HYPERSENSITIVITY [None]
  - EOSINOPHILIA [None]
  - ERYTHEMA MULTIFORME [None]
  - GAMMA-GLUTAMYLTRANSFERASE INCREASED [None]
  - MUCOSAL EROSION [None]
  - PYREXIA [None]
  - RASH MACULO-PAPULAR [None]
  - RENAL FAILURE [None]
  - SKIN LESION [None]
  - TOXIC SKIN ERUPTION [None]
  - TRANSAMINASES INCREASED [None]
